FAERS Safety Report 6981610-4 (Version None)
Quarter: 2010Q3

REPORT INFORMATION
  Report Type: 
  Country: None (occurrence: None)
  Receive Date: 20100914
  Receipt Date: 20090914
  Transmission Date: 20110219
  Serious: No
  Sender: FDA-Public Use
  Company Number: US-PFIZER INC-2009268456

PATIENT
  Sex: Female
  Weight: 47.62 kg

DRUGS (5)
  1. LYRICA [Suspect]
     Indication: COMPLEX REGIONAL PAIN SYNDROME
     Dosage: 50 MG, 2X/DAY
     Route: 065
     Dates: start: 20090601, end: 20090911
  2. FENTANYL [Suspect]
     Indication: COMPLEX REGIONAL PAIN SYNDROME
     Dosage: EVERY 72 HOURS
     Dates: start: 20090301
  3. OXYCODONE HCL AND ACETAMINOPHEN [Suspect]
     Indication: COMPLEX REGIONAL PAIN SYNDROME
     Dosage: [OXYCODONE HYDROCHLORIDE 10MG]/[PARACETAMOL 325MG], EVERY SIX HOURS AS NEEDED
     Route: 048
     Dates: start: 20081201
  4. LIDODERM [Suspect]
     Indication: COMPLEX REGIONAL PAIN SYNDROME
     Dosage: 2-3 PATCHES A DAY, 12 HRS ON AND OFF
     Dates: start: 20090301
  5. LIDODERM [Suspect]
     Dosage: 5-6 PATCHES A DAY, 12 HOURS ON AND OFF

REACTIONS (3)
  - DISORIENTATION [None]
  - DRUG INEFFECTIVE [None]
  - INSOMNIA [None]
